FAERS Safety Report 10301243 (Version 1)
Quarter: 2014Q3

REPORT INFORMATION
  Report Type: Spontaneous
  Country: US (occurrence: None)
  Receive Date: 20140711
  Receipt Date: 20140711
  Transmission Date: 20150326
  Serious: Yes (Death)
  Sender: FDA-Public Use
  Company Number: None

PATIENT
  Age: 20 Year
  Sex: Female
  Weight: 131 kg

DRUGS (1)
  1. OMNIPAQUE [Suspect]
     Active Substance: IOHEXOL
     Indication: COMPUTERISED TOMOGRAM
     Dosage: 100 ML, ONCE, INTRAVENOUS
     Route: 042
     Dates: start: 20140626, end: 20140626

REACTIONS (3)
  - Dyspnoea [None]
  - Vomiting [None]
  - Anaphylactic reaction [None]

NARRATIVE: CASE EVENT DATE: 20140626
